FAERS Safety Report 24134062 (Version 1)
Quarter: 2024Q3

REPORT INFORMATION
  Report Type: Spontaneous
  Country: US (occurrence: US)
  Receive Date: 20240724
  Receipt Date: 20240724
  Transmission Date: 20241016
  Serious: Yes (Other)
  Sender: BIOMARIN
  Company Number: US-BIOMARINAP-US-2024-159351

PATIENT

DRUGS (1)
  1. PALYNZIQ [Suspect]
     Active Substance: PEGVALIASE-PQPZ
     Indication: Product used for unknown indication
     Route: 058

REACTIONS (6)
  - Throat tightness [Unknown]
  - Oral pruritus [Unknown]
  - Fatigue [Unknown]
  - Injection site bruising [Unknown]
  - Injection site swelling [Unknown]
  - Nausea [Unknown]
